FAERS Safety Report 10580320 (Version 2)
Quarter: 2015Q3

REPORT INFORMATION
  Report Type: Spontaneous
  Country: US (occurrence: US)
  Receive Date: 20141112
  Receipt Date: 20150818
  Transmission Date: 20151125
  Serious: No
  Sender: FDA-Public Use
  Company Number: US-GILEAD-2014-0121892

PATIENT
  Age: 41 Year
  Sex: Male

DRUGS (10)
  1. DILTIAZEM [Concomitant]
     Active Substance: DILTIAZEM
  2. OMEPRAZOLE. [Concomitant]
     Active Substance: OMEPRAZOLE
  3. LETAIRIS [Suspect]
     Active Substance: AMBRISENTAN
     Indication: PULMONARY ARTERIAL HYPERTENSION
     Dosage: 10 MG, QD
     Route: 065
     Dates: start: 20120615
  4. NITROGLYCERIN. [Concomitant]
     Active Substance: NITROGLYCERIN
  5. KEPPRA [Concomitant]
     Active Substance: LEVETIRACETAM
  6. LASIX [Concomitant]
     Active Substance: FUROSEMIDE
  7. POTASSIUM [Concomitant]
     Active Substance: POTASSIUM
  8. CALCIUM [Concomitant]
     Active Substance: CALCIUM
  9. METFORMIN [Concomitant]
     Active Substance: METFORMIN HYDROCHLORIDE
  10. SPIRONOLACTONE. [Concomitant]
     Active Substance: SPIRONOLACTONE

REACTIONS (3)
  - Pain in extremity [Unknown]
  - Pain in jaw [Unknown]
  - Fluid retention [Unknown]

NARRATIVE: CASE EVENT DATE: 20141104
